FAERS Safety Report 15714828 (Version 1)
Quarter: 2018Q4

REPORT INFORMATION
  Report Type: Spontaneous
  Country: US (occurrence: US)
  Receive Date: 20181212
  Receipt Date: 20181212
  Transmission Date: 20190205
  Serious: Yes (Hospitalization, Other)
  Sender: FDA-Public Use
  Company Number: US-SANIK-2018SA337969AA

PATIENT
  Sex: Male

DRUGS (3)
  1. ELIQUIS [Suspect]
     Active Substance: APIXABAN
     Dosage: 5 MG, BID
     Route: 065
  2. BC [ACETYLSALICYLIC ACID;CAFFEINE] [Concomitant]
     Dosage: UNK UNK, UNK
  3. PLAVIX [Suspect]
     Active Substance: CLOPIDOGREL BISULFATE
     Dosage: UNK UNK, UNK
     Route: 065

REACTIONS (4)
  - Peripheral artery thrombosis [Unknown]
  - Haemoglobin abnormal [Unknown]
  - Gangrene [Unknown]
  - Melaena [Unknown]
